FAERS Safety Report 19979096 (Version 2)
Quarter: 2021Q4

REPORT INFORMATION
  Report Type: Report from Study
  Country: CN (occurrence: CN)
  Receive Date: 20211020
  Receipt Date: 20211026
  Transmission Date: 20220303
  Serious: Yes (Hospitalization)
  Sender: FDA-Public Use
  Company Number: CN-GILEAD-2021-0553169

PATIENT
  Sex: Female
  Weight: 55 kg

DRUGS (6)
  1. TENOFOVIR ALAFENAMIDE [Suspect]
     Active Substance: TENOFOVIR ALAFENAMIDE
     Indication: Hepatitis B
     Dosage: 1 DOSAGE FORM, QD
     Route: 048
     Dates: start: 20210220
  2. ENTECAVIR [Concomitant]
     Active Substance: ENTECAVIR
     Indication: Hepatitis B
     Route: 048
     Dates: start: 201907
  3. ENTECAVIR [Concomitant]
     Active Substance: ENTECAVIR
     Dosage: 0.5 MG, QD
     Route: 048
     Dates: start: 20210209
  4. CALCIUM CARBONATE [Concomitant]
     Active Substance: CALCIUM CARBONATE
     Dosage: UNK
     Dates: start: 20210209
  5. GLUCOSAMINE HYDROCHLORIDE [Concomitant]
     Active Substance: GLUCOSAMINE HYDROCHLORIDE
     Dosage: UNK
     Dates: start: 20210209
  6. ALUMINUM MAGNESIUM HYDRATE;CALCIUM CARBONATE;EPAB [Concomitant]
     Dosage: UNK
     Dates: start: 20210611

REACTIONS (2)
  - Chronic graft versus host disease [Recovered/Resolved]
  - Basal cell carcinoma [Recovered/Resolved]

NARRATIVE: CASE EVENT DATE: 20211012
